FAERS Safety Report 7077489-5 (Version None)
Quarter: 2010Q4

REPORT INFORMATION
  Report Type: 
  Country: None (occurrence: None)
  Receive Date: 20101101
  Receipt Date: 20101026
  Transmission Date: 20110411
  Serious: Yes (Hospitalization, Other)
  Sender: FDA-Public Use
  Company Number: FR-BRISTOL-MYERS SQUIBB COMPANY-15356611

PATIENT
  Age: 31 Year
  Sex: Male

DRUGS (2)
  1. IRBESARTAN [Suspect]
     Dates: start: 20100807, end: 20100816
  2. RAMIPRIL [Suspect]
     Dates: start: 20100730, end: 20100807

REACTIONS (3)
  - HYPERKALAEMIA [None]
  - INJURY [None]
  - TIBIA FRACTURE [None]
